FAERS Safety Report 7780118-6 (Version None)
Quarter: 2011Q3

REPORT INFORMATION
  Report Type: 
  Country: None (occurrence: None)
  Receive Date: 20110927
  Receipt Date: 20110916
  Transmission Date: 20111222
  Serious: Yes (Hospitalization)
  Sender: FDA-Public Use
  Company Number: US-NOVOPROD-335487

PATIENT
  Sex: Male
  Weight: 35.2 kg

DRUGS (1)
  1. NORDITROPIN NORDIFLEX [Suspect]
     Indication: GROWTH HORMONE DEFICIENCY
     Dosage: UNK
     Route: 058
     Dates: start: 20050501, end: 20061201

REACTIONS (1)
  - TYPE 1 DIABETES MELLITUS [None]
